FAERS Safety Report 4269468-8 (Version None)
Quarter: 2004Q1

REPORT INFORMATION
  Report Type: 
  Country: None (occurrence: None)
  Receive Date: 20040112
  Receipt Date: 20040106
  Transmission Date: 20041129
  Serious: Yes (Other)
  Sender: FDA-Public Use
  Company Number: 2004192797IE

PATIENT
  Age: 81 Year
  Sex: Female

DRUGS (9)
  1. DETRUSITOL [Suspect]
     Indication: STRESS INCONTINENCE
     Dosage: 2 MG, ORAL
     Route: 048
     Dates: start: 20020313, end: 20031122
  2. FOSAMAX [Suspect]
     Dosage: 70 MG, WEEKLY, ORAL
     Route: 048
     Dates: start: 20020529, end: 20031122
  3. ISTIN (AMLODIPINE BESILATE) [Concomitant]
  4. VASCACE [Concomitant]
  5. NORMISON [Concomitant]
  6. LIPITOR [Concomitant]
  7. ZOTON [Concomitant]
  8. CALCICHEW-D3 [Concomitant]
  9. FYBOGEL(ISPAGHULA) [Concomitant]

REACTIONS (2)
  - ANGIONEUROTIC OEDEMA [None]
  - RASH ERYTHEMATOUS [None]
